FAERS Safety Report 9990847 (Version 1)
Quarter: 2014Q1

REPORT INFORMATION
  Report Type: Spontaneous
  Country: US (occurrence: None)
  Receive Date: 20140307
  Receipt Date: 20140307
  Transmission Date: 20141002
  Serious: No
  Sender: FDA-Public Use
  Company Number: None

PATIENT
  Age: 69 Year
  Sex: Male
  Weight: 95.5 kg

DRUGS (1)
  1. METHOTREXATE [Suspect]
     Indication: BRAIN NEOPLASM
     Route: 042
     Dates: start: 20140218

REACTIONS (2)
  - Toxicity to various agents [None]
  - Blood creatinine increased [None]
